FAERS Safety Report 25711773 (Version 1)
Quarter: 2025Q3

REPORT INFORMATION
  Report Type: Spontaneous
  Country: US (occurrence: US)
  Receive Date: 20250821
  Receipt Date: 20250821
  Transmission Date: 20251021
  Serious: No
  Sender: SANOFI AVENTIS
  Company Number: US-SA-2025SA245285

PATIENT
  Age: 11 Year
  Sex: Female
  Weight: 24.943 kg

DRUGS (18)
  1. FABRAZYME [Suspect]
     Active Substance: AGALSIDASE BETA
     Indication: Fabry^s disease
     Dosage: 25 MG, QOW
     Route: 042
  2. ACETAMINOPHEN [Concomitant]
     Active Substance: ACETAMINOPHEN
  3. EPINEPHRINE [Concomitant]
     Active Substance: EPINEPHRINE
  4. SODIUM CHLORIDE [Concomitant]
     Active Substance: SODIUM CHLORIDE
  5. STERILE WATER [Concomitant]
     Active Substance: WATER
  6. ZYRTEC [Concomitant]
     Active Substance: CETIRIZINE HYDROCHLORIDE
  7. VITAMIN D3 [Concomitant]
     Active Substance: CHOLECALCIFEROL
  8. CYCLOPHOSPHAMIDE [Concomitant]
     Active Substance: CYCLOPHOSPHAMIDE
  9. PEPCID [Concomitant]
     Active Substance: FAMOTIDINE
  10. TAMIFLU [Concomitant]
     Active Substance: OSELTAMIVIR PHOSPHATE
  11. MAGNESIUM [Concomitant]
     Active Substance: MAGNESIUM
  12. HEPARIN [Concomitant]
     Active Substance: HEPARIN SODIUM
  13. SODIUM CHLORIDE [Concomitant]
     Active Substance: SODIUM CHLORIDE
  14. TUMS [Concomitant]
     Active Substance: CALCIUM CARBONATE
  15. DIPHENHYDRAMINE [Concomitant]
     Active Substance: DIPHENHYDRAMINE
  16. METHYLPREDNISOLONE [Concomitant]
     Active Substance: METHYLPREDNISOLONE
  17. SOLU-MEDROL [Concomitant]
     Active Substance: METHYLPREDNISOLONE SODIUM SUCCINATE
  18. VITAMINS [Concomitant]
     Active Substance: VITAMINS

REACTIONS (8)
  - Sleep disorder [Unknown]
  - Drug hypersensitivity [Unknown]
  - Urticaria [Unknown]
  - Skin burning sensation [Unknown]
  - Paraesthesia [Unknown]
  - Pruritus [Unknown]
  - Rash macular [Unknown]
  - Pyrexia [Unknown]

NARRATIVE: CASE EVENT DATE: 20250801
